FAERS Safety Report 18919405 (Version 3)
Quarter: 2022Q2

REPORT INFORMATION
  Report Type: Other
  Country: US (occurrence: None)
  Receive Date: 20210221
  Receipt Date: 20220401
  Transmission Date: 20220721
  Serious: Yes (Hospitalization, Other)
  Sender: FDA-Public Use
  Company Number: US-ROCHE-2338264

PATIENT
  Sex: Female
  Weight: 67.192 kg

DRUGS (3)
  1. ALECENSA [Suspect]
     Active Substance: ALECTINIB HYDROCHLORIDE
     Indication: Lung neoplasm malignant
     Dosage: TAKE 2 CAPSULE(S) BY MOUTH TWICE A DAY, 2 PILLS IN MORNING AND 2 PILLS IN EVENING.
     Route: 048
     Dates: start: 20181023
  2. ALECENSA [Suspect]
     Active Substance: ALECTINIB HYDROCHLORIDE
     Indication: Metastases to central nervous system
  3. ALECENSA [Suspect]
     Active Substance: ALECTINIB HYDROCHLORIDE
     Indication: Breast cancer female

REACTIONS (4)
  - Neoplasm [Unknown]
  - Blood glucose decreased [Unknown]
  - Internal haemorrhage [Unknown]
  - Memory impairment [Unknown]
